FAERS Safety Report 16694314 (Version 1)
Quarter: 2019Q3

REPORT INFORMATION
  Report Type: Spontaneous
  Country: US (occurrence: US)
  Receive Date: 20190812
  Receipt Date: 20190812
  Transmission Date: 20191004
  Serious: Yes (Other)
  Sender: FDA-Public Use
  Company Number: US-ELI_LILLY_AND_COMPANY-US201908001453

PATIENT
  Sex: Male

DRUGS (4)
  1. HUMALOG [Suspect]
     Active Substance: INSULIN LISPRO
     Indication: TYPE 1 DIABETES MELLITUS
     Dosage: UNK UNK, UNKNOWN
     Route: 058
     Dates: start: 2004
  2. LYRICA [Concomitant]
     Active Substance: PREGABALIN
     Indication: PRODUCT USED FOR UNKNOWN INDICATION
  3. HUMALOG [Suspect]
     Active Substance: INSULIN LISPRO
     Dosage: UNK UNK, UNKNOWN
     Route: 058
  4. LANTUS [Concomitant]
     Active Substance: INSULIN GLARGINE
     Indication: PRODUCT USED FOR UNKNOWN INDICATION

REACTIONS (13)
  - Hepatic fibrosis [Unknown]
  - Juvenile idiopathic arthritis [Unknown]
  - Fibromyalgia [Unknown]
  - Systemic lupus erythematosus [Unknown]
  - Autoimmune hepatitis [Unknown]
  - Cardiac arrest [Unknown]
  - Vitamin D decreased [Unknown]
  - Blood glucose decreased [Unknown]
  - Suspected product tampering [Unknown]
  - Juvenile psoriatic arthritis [Unknown]
  - Blood glucose increased [Unknown]
  - Autoimmune thyroiditis [Unknown]
  - Hepatic steatosis [Unknown]
